FAERS Safety Report 8372833-0 (Version None)
Quarter: 2012Q2

REPORT INFORMATION
  Report Type: 
  Country: None (occurrence: None)
  Receive Date: 20120521
  Receipt Date: 20120511
  Transmission Date: 20120825
  Serious: Yes (Hospitalization)
  Sender: FDA-Public Use
  Company Number: FR-PFIZER INC-2012120232

PATIENT
  Age: 69 Year
  Sex: Male

DRUGS (7)
  1. LOSARTAN POTASSIUM AND HYDROCHLOROTHIAZIDE [Concomitant]
     Dosage: UNK
  2. CORDARONE [Suspect]
     Indication: TACHYCARDIA
     Dosage: 200 MG, 1X/DAY
     Route: 048
  3. ASPIRIN [Interacting]
     Indication: PROPHYLAXIS
     Dosage: 75 MG, 1X/DAY
     Route: 048
     Dates: end: 20120324
  4. PENTOXIFYLLINE [Interacting]
     Indication: AORTIC VALVE REPLACEMENT
     Dosage: 20 MG, 1X/DAY
     Route: 048
     Dates: start: 20040101, end: 20120324
  5. BISOPROLOL FUMARATE [Concomitant]
     Dosage: UNK
  6. LEVOTHYROXINE SODIUM [Interacting]
     Indication: HYPOTHYROIDISM
     Dosage: 50 UG, 1X/DAY
     Route: 048
  7. NEXIUM [Concomitant]
     Dosage: UNK

REACTIONS (2)
  - HAEMATOMA [None]
  - DRUG INTERACTION [None]
